FAERS Safety Report 7910580-7 (Version None)
Quarter: 2011Q4

REPORT INFORMATION
  Report Type: 
  Country: None (occurrence: None)
  Receive Date: 20111111
  Receipt Date: 20111109
  Transmission Date: 20120403
  Serious: Yes (Death, Hospitalization)
  Sender: FDA-Public Use
  Company Number: PHHY2011BR098721

PATIENT
  Sex: Female

DRUGS (3)
  1. APRESOLINE [Concomitant]
     Indication: HYPERTENSION
     Dosage: TWO TABLET EVERY 12 HOURS OR, ONCE A DAY
  2. DIOVAN HCT [Suspect]
     Indication: HYPERTENSION
     Dosage: 2 DF, (320/25 MG, ONE TABLET IN THE MORNING AND ONE TABLET AT NIGHT)
     Route: 048
  3. METOPROLOL SUCCINATE [Concomitant]

REACTIONS (8)
  - CORONARY ARTERY DISEASE [None]
  - DYSPNOEA [None]
  - CARDIOMEGALY [None]
  - CARDIO-RESPIRATORY ARREST [None]
  - HYPERTENSION [None]
  - CARDIAC FAILURE [None]
  - PNEUMONIA [None]
  - ACUTE PULMONARY OEDEMA [None]
